FAERS Safety Report 8875551 (Version 1)
Quarter: 2012Q4

REPORT INFORMATION
  Report Type: 
  Country: CI (occurrence: CI)
  Receive Date: 20121023
  Receipt Date: 20121023
  Transmission Date: 20130627
  Serious: Yes (Disabling)
  Sender: FDA-Public Use
  Company Number: PHHY2012CI094634

PATIENT
  Age: 51 Year
  Sex: Female

DRUGS (2)
  1. COARTEM [Suspect]
     Indication: MALARIA
     Route: 048
     Dates: start: 2009
  2. DOLIPRANE [Concomitant]

REACTIONS (5)
  - Eyelid oedema [Recovered/Resolved with Sequelae]
  - Eyelid ptosis [Recovered/Resolved with Sequelae]
  - Swelling face [Recovered/Resolved with Sequelae]
  - Dizziness [Recovered/Resolved with Sequelae]
  - Headache [Recovered/Resolved with Sequelae]
